FAERS Safety Report 19944598 (Version 1)
Quarter: 2021Q4

REPORT INFORMATION
  Report Type: 
  Country: US (occurrence: US)
  Receive Date: 20211011
  Receipt Date: 20211011
  Transmission Date: 20220304
  Serious: No
  Sender: FDA-Public Use
  Company Number: US-C B FLEET CO INC-202106-US-002256

PATIENT
  Sex: Female

DRUGS (2)
  1. MONISTAT 1 COMBINATION PACK [Suspect]
     Active Substance: MICONAZOLE NITRATE
     Indication: Vulvovaginal pruritus
     Dosage: DOSAGE UNKNOWN
     Route: 067
  2. MONISTAT 1 COMBINATION PACK [Suspect]
     Active Substance: MICONAZOLE NITRATE
     Indication: Vulvovaginal burning sensation

REACTIONS (5)
  - Condition aggravated [Recovered/Resolved]
  - Vulvovaginal erythema [Unknown]
  - Vulvovaginal inflammation [Recovered/Resolved]
  - Vulvovaginal discomfort [Unknown]
  - Scar [Not Recovered/Not Resolved]
